FAERS Safety Report 20032713 (Version 1)
Quarter: 2021Q4

REPORT INFORMATION
  Report Type: Spontaneous
  Country: US (occurrence: US)
  Receive Date: 20211104
  Receipt Date: 20211104
  Transmission Date: 20220304
  Serious: No
  Sender: FDA-Public Use
  Company Number: US-JNJFOC-20211047847

PATIENT
  Age: 58 Year
  Sex: Male

DRUGS (17)
  1. ZYRTEC [Suspect]
     Active Substance: CETIRIZINE HYDROCHLORIDE
     Indication: Rash
     Route: 065
     Dates: start: 202109
  2. ZYRTEC [Suspect]
     Active Substance: CETIRIZINE HYDROCHLORIDE
     Indication: Headache
  3. ZYRTEC [Suspect]
     Active Substance: CETIRIZINE HYDROCHLORIDE
     Indication: Arthralgia
  4. ZYRTEC [Suspect]
     Active Substance: CETIRIZINE HYDROCHLORIDE
     Indication: Pruritus
  5. BENADRYL [Suspect]
     Active Substance: DIPHENHYDRAMINE HYDROCHLORIDE
     Indication: Rash
     Route: 065
     Dates: start: 202109
  6. BENADRYL [Suspect]
     Active Substance: DIPHENHYDRAMINE HYDROCHLORIDE
     Indication: Headache
  7. BENADRYL [Suspect]
     Active Substance: DIPHENHYDRAMINE HYDROCHLORIDE
     Indication: Arthralgia
  8. BENADRYL [Suspect]
     Active Substance: DIPHENHYDRAMINE HYDROCHLORIDE
     Indication: Pruritus
  9. COVID-19 VACCINE [Concomitant]
     Indication: COVID-19 immunisation
     Route: 065
     Dates: start: 20210923
  10. CLARITIN [Concomitant]
     Active Substance: LORATADINE
     Indication: Rash
     Route: 065
     Dates: start: 202109
  11. CLARITIN [Concomitant]
     Active Substance: LORATADINE
     Indication: Headache
  12. CLARITIN [Concomitant]
     Active Substance: LORATADINE
     Indication: Arthralgia
  13. CLARITIN [Concomitant]
     Active Substance: LORATADINE
     Indication: Pruritus
  14. PREDNISONE [Concomitant]
     Active Substance: PREDNISONE
     Indication: Rash
     Route: 065
  15. PREDNISONE [Concomitant]
     Active Substance: PREDNISONE
     Indication: Headache
  16. PREDNISONE [Concomitant]
     Active Substance: PREDNISONE
     Indication: Arthralgia
  17. PREDNISONE [Concomitant]
     Active Substance: PREDNISONE
     Indication: Pruritus

REACTIONS (2)
  - Product use in unapproved indication [Unknown]
  - Off label use [Unknown]

NARRATIVE: CASE EVENT DATE: 20210901
